FAERS Safety Report 22073209 (Version 1)
Quarter: 2023Q1

REPORT INFORMATION
  Report Type: Spontaneous
  Country: AU (occurrence: AU)
  Receive Date: 20230308
  Receipt Date: 20230308
  Transmission Date: 20230417
  Serious: Yes (Hospitalization)
  Sender: FDA-Public Use
  Company Number: AU-Accord-301225

PATIENT
  Age: 74 Year
  Sex: Female
  Weight: 55.70 kg

DRUGS (25)
  1. GEMCITABINE [Suspect]
     Active Substance: GEMCITABINE
     Indication: Diffuse large B-cell lymphoma stage IV
     Dosage: 1Q2W
     Route: 042
     Dates: start: 20230111
  2. OXALIPLATIN [Suspect]
     Active Substance: OXALIPLATIN
     Indication: Diffuse large B-cell lymphoma stage IV
     Dosage: 1Q2W
     Route: 042
     Dates: start: 20230111
  3. EPCORITAMAB [Suspect]
     Active Substance: EPCORITAMAB
     Indication: Diffuse large B-cell lymphoma stage IV
     Dosage: PRIMING DOSE: 0.16 MG, SINGLE
     Route: 058
     Dates: start: 20230111, end: 20230111
  4. DEXAMETHASONE [Concomitant]
     Active Substance: DEXAMETHASONE
     Indication: Prophylaxis
     Dosage: 16 MG
     Route: 048
     Dates: start: 20230111, end: 20230114
  5. DEXAMETHASONE [Concomitant]
     Active Substance: DEXAMETHASONE
     Indication: Prophylaxis
     Dosage: 16 MG
     Route: 042
     Dates: start: 20230201, end: 20230201
  6. LORATADINE [Concomitant]
     Active Substance: LORATADINE
     Indication: Premedication
     Dosage: 10 MG
     Route: 048
     Dates: start: 20230201, end: 20230201
  7. ACETAMINOPHEN [Concomitant]
     Active Substance: ACETAMINOPHEN
     Indication: Premedication
     Dosage: 1 G?AT 11:10 HRS AND 15:45 HRS
     Route: 048
     Dates: start: 20230201, end: 20230201
  8. ALLOPURINOL [Concomitant]
     Active Substance: ALLOPURINOL
     Dates: start: 20221205
  9. ASPIRIN [Concomitant]
     Active Substance: ASPIRIN
     Dates: start: 202207
  10. DAPSONE [Concomitant]
     Active Substance: DAPSONE
     Dates: start: 20230111, end: 20230131
  11. LIPEGFILGRASTIM [Concomitant]
     Active Substance: LIPEGFILGRASTIM
     Dates: start: 20230112
  12. LOPERAMIDE [Concomitant]
     Active Substance: LOPERAMIDE
     Dates: start: 20230118
  13. METOCLOPRAMIDE [Concomitant]
     Active Substance: METOCLOPRAMIDE
     Dates: start: 20230114
  14. ONDANSETRON [Concomitant]
     Active Substance: ONDANSETRON
     Dates: start: 20230118, end: 20230118
  15. PANTOPRAZOLE [Concomitant]
     Active Substance: PANTOPRAZOLE
     Dates: start: 2015
  16. ROSUVASTATIN [Concomitant]
     Active Substance: ROSUVASTATIN
     Dates: start: 202207
  17. TEMAZEPAM [Concomitant]
     Active Substance: TEMAZEPAM
     Dates: start: 20230113
  18. THYROXINE [Concomitant]
     Active Substance: LEVOTHYROXINE
     Dates: start: 2021
  19. VALACYCLOVIR HYDROCHLORIDE [Concomitant]
     Active Substance: VALACYCLOVIR HYDROCHLORIDE
     Dates: start: 20230111
  20. AMOXICILLIN [Concomitant]
     Active Substance: AMOXICILLIN
     Dates: start: 20230210
  21. OSELTAMIVIR [Concomitant]
     Active Substance: OSELTAMIVIR
     Dates: start: 20230209, end: 20230214
  22. ATOVAQUONE [Concomitant]
     Active Substance: ATOVAQUONE
     Dates: start: 20230201
  23. EPCORITAMAB [Suspect]
     Active Substance: EPCORITAMAB
     Indication: Diffuse large B-cell lymphoma stage IV
     Dosage: INTERMEDIATE DOSE: 0.8 MG, SINGLE
     Route: 058
     Dates: start: 20230118, end: 20230118
  24. EPCORITAMAB [Suspect]
     Active Substance: EPCORITAMAB
     Indication: Diffuse large B-cell lymphoma stage IV
     Dosage: FULL DOSE: 48 MILLIGRAM, WEEKLY
     Route: 058
     Dates: start: 20230201, end: 20230201
  25. DEXAMETHASONE [Concomitant]
     Active Substance: DEXAMETHASONE
     Indication: Prophylaxis
     Dosage: 16 MG
     Route: 048
     Dates: start: 20230118, end: 20230118

REACTIONS (1)
  - Cytokine release syndrome [Recovered/Resolved]

NARRATIVE: CASE EVENT DATE: 20230207
